FAERS Safety Report 5186992-4 (Version None)
Quarter: 2006Q4

REPORT INFORMATION
  Report Type: 
  Country: None (occurrence: None)
  Receive Date: 20061213
  Receipt Date: 20061130
  Transmission Date: 20070319
  Serious: Yes (Hospitalization)
  Sender: FDA-Public Use
  Company Number: 2006144678

PATIENT
  Age: 50 Year
  Sex: Male
  Weight: 145.151 kg

DRUGS (5)
  1. CAVERJECT [Suspect]
     Indication: DYSURIA
     Dosage: 40 MCG (20 MCG, AS NECESSARY), INTRACAVERNOSA
     Route: 017
     Dates: start: 20050101
  2. CAVERJECT [Suspect]
     Indication: ERECTILE DYSFUNCTION
     Dosage: 40 MCG (20 MCG, AS NECESSARY), INTRACAVERNOSA
     Route: 017
     Dates: start: 20050101
  3. PERCOCET [Concomitant]
  4. CIALIS [Concomitant]
  5. TRIAMTERENE (TRIAMTERENE) [Concomitant]

REACTIONS (3)
  - DEVICE INEFFECTIVE [None]
  - GALLBLADDER OPERATION [None]
  - PHARMACEUTICAL PRODUCT COMPLAINT [None]
